FAERS Safety Report 5664127-9 (Version None)
Quarter: 2008Q1

REPORT INFORMATION
  Report Type: 
  Country: None (occurrence: None)
  Receive Date: 20080312
  Receipt Date: 20080227
  Transmission Date: 20080703
  Serious: Yes (Hospitalization)
  Sender: FDA-Public Use
  Company Number: 2007BI011431

PATIENT
  Age: 55 Year
  Sex: Female

DRUGS (3)
  1. TYSABRI [Suspect]
     Indication: MULTIPLE SCLEROSIS
     Dosage: 300 MG;QM;IV
     Route: 042
     Dates: start: 20070227, end: 20070412
  2. AVONEX [Concomitant]
  3. FIORINAL W/CODEINE [Concomitant]

REACTIONS (17)
  - BACK PAIN [None]
  - BONE DISORDER [None]
  - CONCUSSION [None]
  - CONVULSION [None]
  - DIARRHOEA [None]
  - FALL [None]
  - GASTROINTESTINAL ULCER HAEMORRHAGE [None]
  - LOWER LIMB FRACTURE [None]
  - NAUSEA [None]
  - POSTICTAL STATE [None]
  - PSYCHOTIC DISORDER [None]
  - RIB FRACTURE [None]
  - SKULL FRACTURE [None]
  - SPINAL DISORDER [None]
  - SYNCOPE [None]
  - VIRAL INFECTION [None]
  - VOMITING [None]
